FAERS Safety Report 13250164 (Version 2)
Quarter: 2017Q1

REPORT INFORMATION
  Report Type: Spontaneous
  Country: US (occurrence: US)
  Receive Date: 20170218
  Receipt Date: 20170227
  Transmission Date: 20170428
  Serious: Yes (Other)
  Sender: FDA-Public Use
  Company Number: US-TEVA-740332ACC

PATIENT
  Age: 32 Year
  Sex: Female
  Weight: 63.56 kg

DRUGS (2)
  1. PREDNISONE. [Concomitant]
     Active Substance: PREDNISONE
  2. PARAGARD T 380A [Suspect]
     Active Substance: COPPER
     Indication: CONTRACEPTION
     Dates: start: 2010, end: 20170127

REACTIONS (9)
  - Vulvovaginal pain [Unknown]
  - Vaginal haemorrhage [Unknown]
  - Pain in extremity [Unknown]
  - Fungal infection [Not Recovered/Not Resolved]
  - Abdominal pain lower [Unknown]
  - Ovarian cyst [Unknown]
  - Pelvic pain [Recovered/Resolved]
  - Urinary tract infection [Unknown]
  - Device dislocation [Recovered/Resolved]

NARRATIVE: CASE EVENT DATE: 201612
